FAERS Safety Report 8603911-6 (Version None)
Quarter: 2012Q3

REPORT INFORMATION
  Report Type: 
  Country: None (occurrence: None)
  Receive Date: 20120820
  Receipt Date: 20120810
  Transmission Date: 20120928
  Serious: Yes (Other)
  Sender: FDA-Public Use
  Company Number: CO-AMGEN-COLSP2012051466

PATIENT
  Age: 74 Year
  Sex: Female

DRUGS (3)
  1. ENBREL [Suspect]
     Indication: RHEUMATOID ARTHRITIS
     Dosage: 50 MG, WEEKLY
     Route: 058
     Dates: start: 20040101
  2. MEDROL [Concomitant]
     Dosage: UNK UNK, UNK
  3. LOVASTATIN [Concomitant]
     Dosage: UNK UNK, UNK

REACTIONS (1)
  - ISCHAEMIC CEREBRAL INFARCTION [None]
